FAERS Safety Report 19867463 (Version 1)
Quarter: 2021Q3

REPORT INFORMATION
  Report Type: Spontaneous
  Country: US (occurrence: US)
  Receive Date: 20210921
  Receipt Date: 20210921
  Transmission Date: 20211014
  Serious: Yes (Hospitalization, Other)
  Sender: FDA-Public Use
  Company Number: US-PFIZER INC-202101188812

PATIENT
  Age: 74 Year
  Sex: Female
  Weight: 56.7 kg

DRUGS (2)
  1. CHANTIX [Suspect]
     Active Substance: VARENICLINE TARTRATE
     Indication: SMOKING CESSATION THERAPY
     Dosage: 1MG TWICE A DAY BY MOUTH
     Route: 048
     Dates: start: 202107, end: 202108
  2. ELIQUIS [Concomitant]
     Active Substance: APIXABAN
     Indication: ANTICOAGULANT THERAPY

REACTIONS (8)
  - Recalled product administered [Unknown]
  - Hypoaesthesia [Recovered/Resolved]
  - Haemorrhage [Unknown]
  - Fall [Unknown]
  - Seizure [Unknown]
  - Contusion [Unknown]
  - Loss of consciousness [Recovered/Resolved]
  - Hypoaesthesia oral [Recovered/Resolved]

NARRATIVE: CASE EVENT DATE: 20210704
